FAERS Safety Report 24559949 (Version 1)
Quarter: 2024Q4

REPORT INFORMATION
  Report Type: Spontaneous
  Country: JP (occurrence: JP)
  Receive Date: 20241029
  Receipt Date: 20241029
  Transmission Date: 20250114
  Serious: Yes (Death)
  Sender: STRIDES
  Company Number: JP-STRIDES ARCOLAB LIMITED-2024SP013877

PATIENT
  Age: 79 Year
  Sex: Male

DRUGS (4)
  1. METHOTREXATE [Suspect]
     Active Substance: METHOTREXATE
     Indication: Rheumatoid arthritis
     Dosage: UNK
     Route: 065
  2. TACROLIMUS [Suspect]
     Active Substance: TACROLIMUS
     Indication: Rheumatoid arthritis
     Dosage: UNK
     Route: 065
  3. SULFASALAZINE [Concomitant]
     Active Substance: SULFASALAZINE
     Indication: Rheumatoid arthritis
     Dosage: UNK
     Route: 065
  4. BUCILLAMINE [Concomitant]
     Active Substance: BUCILLAMINE
     Indication: Rheumatoid arthritis
     Dosage: UNK
     Route: 065

REACTIONS (3)
  - Immune system disorder [Fatal]
  - Epstein-Barr virus associated lymphoproliferative disorder [Fatal]
  - Off label use [Unknown]
